FAERS Safety Report 15557193 (Version 1)
Quarter: 2018Q4

REPORT INFORMATION
  Report Type: Report from Study
  Country: US (occurrence: US)
  Receive Date: 20181026
  Receipt Date: 20181026
  Transmission Date: 20190205
  Serious: Yes (Death)
  Sender: FDA-Public Use
  Company Number: US-ACTELION-A-NJ2018-169990

PATIENT
  Age: 63 Year
  Sex: Female
  Weight: 134.24 kg

DRUGS (2)
  1. OPSUMIT [Suspect]
     Active Substance: MACITENTAN
     Indication: PULMONARY ARTERIAL HYPERTENSION
     Dosage: 10 MG, QD
     Route: 048
     Dates: start: 201803
  2. ADCIRCA [Concomitant]
     Active Substance: TADALAFIL

REACTIONS (14)
  - Myocardial infarction [Fatal]
  - Condition aggravated [Unknown]
  - Weight increased [Unknown]
  - Dyspnoea exertional [Unknown]
  - Presyncope [Unknown]
  - Insomnia [Unknown]
  - Dizziness [Unknown]
  - Heart rate increased [Unknown]
  - Fluid retention [Unknown]
  - Anxiety [Unknown]
  - Disturbance in attention [Unknown]
  - Confusional state [Unknown]
  - Feeling abnormal [Unknown]
  - Syncope [Unknown]

NARRATIVE: CASE EVENT DATE: 201803
